FAERS Safety Report 8037192-1 (Version None)
Quarter: 2012Q1

REPORT INFORMATION
  Report Type: 
  Country: None (occurrence: None)
  Receive Date: 20120106
  Receipt Date: 20111229
  Transmission Date: 20120608
  Serious: Yes (Hospitalization)
  Sender: FDA-Public Use
  Company Number: 2011-000170

PATIENT
  Age: 38 Year
  Sex: Female

DRUGS (3)
  1. VITAMINS NOS (VITAMIN NOS) [Concomitant]
  2. FEMCON FE [Suspect]
     Indication: CONTRACEPTION
     Dosage: ORAL
     Route: 048
     Dates: start: 20090101, end: 20110801
  3. OVCON-35 [Suspect]
     Indication: CONTRACEPTION
     Dosage: ORAL
     Route: 048
     Dates: start: 19890101

REACTIONS (3)
  - UTERINE LEIOMYOMA [None]
  - VARICOSE VEIN [None]
  - ALOPECIA [None]
